FAERS Safety Report 5960069-X (Version None)
Quarter: 2008Q4

REPORT INFORMATION
  Report Type: 
  Country: None (occurrence: None)
  Receive Date: 20081119
  Receipt Date: 20081119
  Transmission Date: 20090506
  Serious: Yes (Hospitalization)
  Sender: FDA-Public Use
  Company Number: None

PATIENT
  Age: 36 Year
  Sex: Male

DRUGS (2)
  1. PHENYTOIN [Suspect]
     Indication: CONVULSION
     Dosage: 100 MG PO BID
     Route: 048
  2. CARBAMAZEPINE [Concomitant]

REACTIONS (3)
  - ANTICONVULSANT DRUG LEVEL INCREASED [None]
  - ATAXIA [None]
  - LETHARGY [None]
